FAERS Safety Report 24624927 (Version 1)
Quarter: 2024Q4

REPORT INFORMATION
  Report Type: Spontaneous
  Country: GB (occurrence: GB)
  Receive Date: 20241115
  Receipt Date: 20241115
  Transmission Date: 20250114
  Serious: Yes (Death, Life-Threatening, Other)
  Sender: FERRING
  Company Number: None

PATIENT

DRUGS (1)
  1. DINOPROSTONE [Suspect]
     Active Substance: DINOPROSTONE
     Indication: Labour induction
     Dosage: 10 MG MOD RELEASE PESSARIE
     Route: 065
     Dates: start: 20241101, end: 20241102

REACTIONS (3)
  - Postpartum haemorrhage [Fatal]
  - Disseminated intravascular coagulation [Fatal]
  - Uterine hyperstimulation [Recovered/Resolved]

NARRATIVE: CASE EVENT DATE: 20241102
